FAERS Safety Report 8073668-9 (Version None)
Quarter: 2012Q1

REPORT INFORMATION
  Report Type: 
  Country: None (occurrence: None)
  Receive Date: 20120126
  Receipt Date: 20120118
  Transmission Date: 20120608
  Serious: Yes (Hospitalization)
  Sender: FDA-Public Use
  Company Number: IT-ABBOTT-12P-083-0895006-00

PATIENT
  Sex: Female

DRUGS (9)
  1. ATORVASTATINA [Concomitant]
     Indication: PRODUCT USED FOR UNKNOWN INDICATION
  2. TICLID [Concomitant]
     Indication: PRODUCT USED FOR UNKNOWN INDICATION
  3. PIPERACILLIN AND TAZOBACTAM [Suspect]
     Indication: BRONCHOPNEUMONIA
     Dosage: 1 UNIT DAILY
     Route: 042
     Dates: start: 20110813, end: 20110825
  4. OMEPRAZOLE [Concomitant]
     Indication: PRODUCT USED FOR UNKNOWN INDICATION
  5. CEFTRIAXONE [Suspect]
     Indication: BRONCHOPNEUMONIA
     Dosage: 2 GRAMS DAILY
     Route: 042
     Dates: start: 20110808, end: 20110812
  6. SPIRONOLACTONE [Concomitant]
     Indication: PRODUCT USED FOR UNKNOWN INDICATION
  7. CLARITHROMYCIN [Suspect]
     Indication: BRONCHOPNEUMONIA
     Dosage: 1 UNIT 2 DAYS
     Route: 048
     Dates: start: 20110824, end: 20110825
  8. CARVEDILOL [Concomitant]
     Indication: PRODUCT USED FOR UNKNOWN INDICATION
  9. TELMISARTAN [Concomitant]
     Indication: PRODUCT USED FOR UNKNOWN INDICATION

REACTIONS (2)
  - MEGACOLON [None]
  - CLOSTRIDIUM COLITIS [None]
